FAERS Safety Report 16109604 (Version 1)
Quarter: 2019Q1

REPORT INFORMATION
  Report Type: Report from Study
  Country: None (occurrence: BR)
  Receive Date: 20190324
  Receipt Date: 20190324
  Transmission Date: 20190418
  Serious: Yes (Hospitalization)
  Sender: FDA-Public Use
  Company Number: BR-ABBVIE-19K-020-2711721-00

PATIENT
  Sex: Female

DRUGS (1)
  1. HUMIRA [Suspect]
     Active Substance: ADALIMUMAB
     Indication: ANKYLOSING SPONDYLITIS
     Route: 058
     Dates: start: 20171107, end: 20190209

REACTIONS (7)
  - Premature separation of placenta [Recovered/Resolved]
  - Menstruation delayed [Recovered/Resolved]
  - Dizziness [Recovered/Resolved]
  - Haemorrhage [Recovered/Resolved]
  - Malaise [Recovered/Resolved]
  - Exposure during pregnancy [Unknown]
  - Abdominal pain upper [Recovered/Resolved]
